FAERS Safety Report 15313647 (Version 1)
Quarter: 2018Q3

REPORT INFORMATION
  Report Type: Spontaneous
  Country: BR (occurrence: BR)
  Receive Date: 20180824
  Receipt Date: 20180824
  Transmission Date: 20181010
  Serious: Yes (Other)
  Sender: FDA-Public Use
  Company Number: BR-ROCHE-2173482

PATIENT
  Sex: Male

DRUGS (7)
  1. FLUOXETINE [Concomitant]
     Active Substance: FLUOXETINE HYDROCHLORIDE
     Indication: SPINAL OSTEOARTHRITIS
  2. ESCITALOPRAM [Concomitant]
     Active Substance: ESCITALOPRAM OXALATE
     Indication: SPINAL OSTEOARTHRITIS
  3. PROLOPA BD [Suspect]
     Active Substance: BENSERAZIDE\LEVODOPA
     Indication: SPINAL OSTEOARTHRITIS
     Dosage: 100/25 MG
     Route: 065
  4. AMANTADINE. [Concomitant]
     Active Substance: AMANTADINE HYDROCHLORIDE
     Indication: SPINAL OSTEOARTHRITIS
  5. PRAMIPEXOL [Concomitant]
     Active Substance: PRAMIPEXOLE
     Indication: SPINAL OSTEOARTHRITIS
  6. RASAGILINE. [Concomitant]
     Active Substance: RASAGILINE
     Indication: SPINAL OSTEOARTHRITIS
     Route: 065
  7. RIVOTRIL [Suspect]
     Active Substance: CLONAZEPAM
     Indication: SPINAL OSTEOARTHRITIS
     Route: 065

REACTIONS (6)
  - Off label use [Unknown]
  - Spondylitis [Recovering/Resolving]
  - Tremor [Recovering/Resolving]
  - Bradykinesia [Recovering/Resolving]
  - Musculoskeletal stiffness [Recovering/Resolving]
  - Intentional product use issue [Unknown]
